FAERS Safety Report 7635737-4 (Version None)
Quarter: 2011Q3

REPORT INFORMATION
  Report Type: 
  Country: None (occurrence: None)
  Receive Date: 20110726
  Receipt Date: 20110719
  Transmission Date: 20111222
  Serious: Yes (Hospitalization)
  Sender: FDA-Public Use
  Company Number: PHHO2011JP07082

PATIENT
  Sex: Female
  Weight: 43 kg

DRUGS (13)
  1. TEGRETOL [Suspect]
     Indication: EPILEPSY
     Dosage: 600 MG, DAILY
     Route: 048
     Dates: start: 20100601, end: 20110305
  2. EURODIN [Concomitant]
     Indication: INSOMNIA
     Dosage: 2 MG, UNK
     Route: 048
     Dates: start: 20100601
  3. ZONISAMIDE [Suspect]
     Indication: EPILEPSY
     Dosage: 200 MG, DAILY
     Route: 048
     Dates: start: 20100601
  4. DEPAKENE [Suspect]
     Dosage: 1800 MG, DAILY
     Route: 048
     Dates: start: 20110306, end: 20110516
  5. TEGRETOL [Suspect]
     Dosage: 1200 MG, DAILY
     Route: 048
     Dates: start: 20110306, end: 20110516
  6. TEGRETOL [Suspect]
     Dosage: 600 MG DAILY
     Route: 048
     Dates: start: 20110517
  7. AFINITOR [Suspect]
     Indication: TUBEROUS SCLEROSIS
     Dosage: DOUBLE BLIND
     Route: 048
     Dates: start: 20101211, end: 20110527
  8. BLINDED NO TREATMENT RECEIVED [Suspect]
     Indication: TUBEROUS SCLEROSIS
     Dosage: DOUBLE BLIND
     Route: 048
     Dates: start: 20101211, end: 20110527
  9. PLACEBO [Suspect]
     Indication: TUBEROUS SCLEROSIS
     Dosage: DOUBLE BLIND
     Route: 048
     Dates: start: 20101211, end: 20110527
  10. ALEVIATIN [Suspect]
     Indication: EPILEPSY
     Dosage: 300 MG, DAILY
     Route: 048
     Dates: start: 20100601
  11. DEPAKENE [Suspect]
     Indication: EPILEPSY
     Dosage: 1200 MG, DAILY
     Route: 048
     Dates: start: 20100601, end: 20110305
  12. DEPAKENE [Suspect]
     Dosage: 1200 MG DAILY
     Route: 048
     Dates: start: 20110517
  13. PRAVASTATIN SODIUM [Concomitant]
     Indication: HYPERLIPIDAEMIA
     Dosage: 5 MG, UNK
     Route: 048
     Dates: start: 20071121

REACTIONS (4)
  - DECREASED APPETITE [None]
  - FATIGUE [None]
  - WEIGHT DECREASED [None]
  - GRAND MAL CONVULSION [None]
